FAERS Safety Report 24617644 (Version 1)
Quarter: 2024Q4

REPORT INFORMATION
  Report Type: Spontaneous
  Country: US (occurrence: US)
  Receive Date: 20241114
  Receipt Date: 20241114
  Transmission Date: 20250115
  Serious: Yes (Other)
  Sender: RANBAXY
  Company Number: US-SUN PHARMACEUTICAL INDUSTRIES LTD-2024R1-478669

PATIENT
  Age: 73 Year
  Sex: Female

DRUGS (3)
  1. DOXYCYCLINE [Suspect]
     Active Substance: DOXYCYCLINE
     Indication: Intraductal papillary mucinous neoplasm
     Dosage: UNK
     Route: 065
  2. NIACINAMIDE [Concomitant]
     Active Substance: NIACINAMIDE
     Indication: Intraductal papillary mucinous neoplasm
     Dosage: UNK
     Route: 065
  3. PREDNISONE [Concomitant]
     Active Substance: PREDNISONE
     Indication: Intraductal papillary mucinous neoplasm
     Dosage: UNK
     Route: 065

REACTIONS (1)
  - Gastric mucosal lesion [Recovering/Resolving]
